FAERS Safety Report 13693974 (Version 1)
Quarter: 2017Q2

REPORT INFORMATION
  Report Type: Spontaneous
  Country: BR (occurrence: BR)
  Receive Date: 20170627
  Receipt Date: 20170627
  Transmission Date: 20170830
  Serious: Yes (Other)
  Sender: FDA-Public Use
  Company Number: BR-GUERBET-BR-20170290

PATIENT
  Age: 48 Year

DRUGS (1)
  1. OPTIRAY 350 [Suspect]
     Active Substance: IOVERSOL
     Indication: COMPUTERISED TOMOGRAM
     Route: 042

REACTIONS (5)
  - Hyperhidrosis [Unknown]
  - Pruritus generalised [Unknown]
  - Bradycardia [Unknown]
  - Hypotension [Unknown]
  - Eyelid oedema [Unknown]
